FAERS Safety Report 4336616-0 (Version None)
Quarter: 2004Q2

REPORT INFORMATION
  Report Type: 
  Country: None (occurrence: None)
  Receive Date: 20040408
  Receipt Date: 20040401
  Transmission Date: 20050107
  Serious: Yes (Hospitalization)
  Sender: FDA-Public Use
  Company Number: 2004207137US

PATIENT
  Age: 77 Year
  Sex: Male

DRUGS (5)
  1. CELEBREX [Suspect]
     Indication: ARTHRITIS
     Dosage: 200 MG, BID,
  2. FLOMAX [Concomitant]
  3. DITROPAN [Concomitant]
  4. MULTIVITAMIN [Concomitant]
  5. GLUCOSAMINE W/CHONDROITIN SULFATES (GLUCOSAMINE SULFATE, MANGANESE) [Concomitant]

REACTIONS (2)
  - COLON CANCER [None]
  - RENAL CELL CARCINOMA STAGE UNSPECIFIED [None]
